FAERS Safety Report 7996678-6 (Version None)
Quarter: 2011Q4

REPORT INFORMATION
  Report Type: 
  Country: None (occurrence: None)
  Receive Date: 20111221
  Receipt Date: 20111208
  Transmission Date: 20120403
  Serious: Yes (Hospitalization)
  Sender: FDA-Public Use
  Company Number: US-BAYER-2011-118671

PATIENT
  Sex: Female

DRUGS (1)
  1. MIRENA [Suspect]
     Indication: CONTRACEPTION
     Dosage: 20 MG/D, CONT
     Route: 015
     Dates: start: 20111201, end: 20111201

REACTIONS (5)
  - ABDOMINAL PAIN [None]
  - PRESYNCOPE [None]
  - VOMITING [None]
  - BLOOD PRESSURE DECREASED [None]
  - PAIN [None]
